FAERS Safety Report 20988526 (Version 1)
Quarter: 2022Q2

REPORT INFORMATION
  Report Type: Spontaneous
  Country: PL (occurrence: PL)
  Receive Date: 20220621
  Receipt Date: 20220621
  Transmission Date: 20220720
  Serious: Yes (Hospitalization, Other)
  Sender: FDA-Public Use
  Company Number: PL-POLPHARMA-040580

PATIENT
  Age: 57 Year
  Sex: Male

DRUGS (1)
  1. DICLOFENAC [Suspect]
     Active Substance: DICLOFENAC
     Indication: Product used for unknown indication
     Dosage: THE PATIENT USED CHRONICALLY MAXIMUM DOSES OF DICLOFENAC
     Route: 065

REACTIONS (1)
  - Upper gastrointestinal haemorrhage [Unknown]
